FAERS Safety Report 7073869-2 (Version None)
Quarter: 2010Q4

REPORT INFORMATION
  Report Type: 
  Country: None (occurrence: None)
  Receive Date: 20101029
  Receipt Date: 20100922
  Transmission Date: 20110411
  Serious: No
  Sender: FDA-Public Use
  Company Number: A0878232A

PATIENT
  Age: 53 Year
  Sex: Female

DRUGS (2)
  1. ADVAIR DISKUS 100/50 [Suspect]
     Indication: CHRONIC OBSTRUCTIVE PULMONARY DISEASE
     Route: 065
  2. STEROID [Concomitant]

REACTIONS (3)
  - ADVERSE EVENT [None]
  - ANGER [None]
  - HYPERSENSITIVITY [None]
